FAERS Safety Report 6146188-6 (Version None)
Quarter: 2009Q2

REPORT INFORMATION
  Report Type: 
  Country: None (occurrence: None)
  Receive Date: 20090407
  Receipt Date: 20090406
  Transmission Date: 20091009
  Serious: No
  Sender: FDA-Public Use
  Company Number: US-B.I. PHARMACEUTICALS,INC./RIDGEFIELD-2009-BP-04207BP

PATIENT
  Sex: Female

DRUGS (1)
  1. CATAPRES-TTS-1 [Suspect]
     Indication: HYPERTENSION
     Dosage: .1MG
     Route: 062
     Dates: start: 20090329, end: 20090406

REACTIONS (3)
  - ARTHRALGIA [None]
  - CHEST DISCOMFORT [None]
  - WHEEZING [None]
